FAERS Safety Report 17873499 (Version 1)
Quarter: 2020Q2

REPORT INFORMATION
  Report Type: Spontaneous
  Country: ES (occurrence: ES)
  Receive Date: 20200609
  Receipt Date: 20200609
  Transmission Date: 20200714
  Serious: Yes (Hospitalization, Other)
  Sender: FDA-Public Use
  Company Number: ES-AUROBINDO-AUR-APL-2020-027425

PATIENT
  Age: 22 Year
  Sex: Female

DRUGS (3)
  1. IBUPROFEN. [Suspect]
     Active Substance: IBUPROFEN
     Indication: PHARYNGOTONSILLITIS
     Dosage: 600 MILLIGRAM, 3 TIMES A DAY
     Route: 048
     Dates: start: 20191031, end: 20191104
  2. AMOXICILLIN+CLAVULANIC ACID [Suspect]
     Active Substance: AMOXICILLIN\CLAVULANIC ACID
     Indication: PHARYNGOTONSILLITIS
     Dosage: 1 DOSAGE FORM, 3 TIMES A DAY (500/125MG /8H)
     Route: 048
     Dates: start: 20191031, end: 20191106
  3. PARACETAMOL [Suspect]
     Active Substance: ACETAMINOPHEN
     Indication: PHARYNGOTONSILLITIS
     Dosage: 650 MILLIGRAM, 3 TIMES A DAY
     Route: 048
     Dates: start: 20191031, end: 20191104

REACTIONS (1)
  - Hepatitis acute [Recovered/Resolved]

NARRATIVE: CASE EVENT DATE: 20191104
